FAERS Safety Report 12657895 (Version 3)
Quarter: 2016Q3

REPORT INFORMATION
  Report Type: Report from Study
  Country: US (occurrence: US)
  Receive Date: 20160817
  Receipt Date: 20160912
  Transmission Date: 20161109
  Serious: Yes (Other)
  Sender: FDA-Public Use
  Company Number: US-AMGEN-USASL2016104614

PATIENT
  Age: 67 Year
  Sex: Female
  Weight: 137 kg

DRUGS (3)
  1. ARMOUR THYROID [Concomitant]
     Active Substance: THYROID, PORCINE
     Dosage: 30 MG, QD
     Route: 065
  2. PROZIDE [Concomitant]
     Dosage: 20 MG, QD
     Route: 065
  3. REPATHA [Suspect]
     Active Substance: EVOLOCUMAB
     Indication: TYPE IIA HYPERLIPIDAEMIA
     Dosage: 140 MG, Q2WK
     Route: 065
     Dates: start: 201510, end: 20160811

REACTIONS (8)
  - Blood pressure increased [Unknown]
  - Pulse abnormal [Unknown]
  - Stress [Unknown]
  - Fatigue [Recovering/Resolving]
  - Hypotension [Unknown]
  - Dizziness [Unknown]
  - Heart rate increased [Unknown]
  - Adrenal disorder [Not Recovered/Not Resolved]
